FAERS Safety Report 11910840 (Version 1)
Quarter: 2016Q1

REPORT INFORMATION
  Report Type: Spontaneous
  Country: ES (occurrence: ES)
  Receive Date: 20160112
  Receipt Date: 20160112
  Transmission Date: 20160526
  Serious: Yes (Hospitalization)
  Sender: FDA-Public Use
  Company Number: ES-PFIZER INC-2016006398

PATIENT
  Age: 12 Year
  Sex: Female
  Weight: 38 kg

DRUGS (1)
  1. IBUPROFEN. [Suspect]
     Active Substance: IBUPROFEN
     Indication: HEADACHE
     Dosage: 10 MG/ KG/ 8 HOURS

REACTIONS (1)
  - Tubulointerstitial nephritis [Recovered/Resolved]
